FAERS Safety Report 5190023-X (Version None)
Quarter: 2006Q4

REPORT INFORMATION
  Report Type: 
  Country: None (occurrence: None)
  Receive Date: 20061215
  Receipt Date: 20061205
  Transmission Date: 20070319
  Serious: Yes (Life-Threatening)
  Sender: FDA-Public Use
  Company Number: B0408280A

PATIENT
  Age: 7 Year
  Sex: Male

DRUGS (2)
  1. ALKERAN [Suspect]
     Indication: STEM CELL TRANSPLANT
     Dosage: 70 MG/M2 / PER DAY / INTRAVENOUS
     Route: 042
     Dates: start: 20040601, end: 20040601
  2. THIOTEPA [Concomitant]

REACTIONS (4)
  - ANAL STENOSIS [None]
  - FEBRILE NEUTROPENIA [None]
  - MUCOUS MEMBRANE DISORDER [None]
  - VENOOCCLUSIVE LIVER DISEASE [None]
